APPROVED DRUG PRODUCT: DORYX
Active Ingredient: DOXYCYCLINE HYCLATE
Strength: EQ 100MG BASE
Dosage Form/Route: CAPSULE, DELAYED RELEASE;ORAL
Application: A062653 | Product #001
Applicant: WARNER CHILCOTT BERMUDA LTD
Approved: Oct 30, 1985 | RLD: No | RS: No | Type: DISCN